FAERS Safety Report 9495478 (Version 2)
Quarter: 2014Q1

REPORT INFORMATION
  Report Type: Spontaneous
  Country: US (occurrence: US)
  Receive Date: 20130903
  Receipt Date: 20140318
  Transmission Date: 20141002
  Serious: Yes (Hospitalization)
  Sender: FDA-Public Use
  Company Number: US-BAYER-2013-105073

PATIENT
  Age: 47 Year
  Sex: Female

DRUGS (18)
  1. MIRENA [Suspect]
     Indication: CONTRACEPTION
     Dosage: 20 MCG/24HR, CONT
     Route: 015
     Dates: start: 20040121, end: 20121022
  2. METFORMIN [Concomitant]
     Indication: DIABETES MELLITUS
     Dosage: 1000 MG, BID
     Route: 048
     Dates: start: 2008
  3. ENALAPRIL [Concomitant]
     Indication: HYPERTENSION
     Dosage: 20 MG, BID
     Route: 048
     Dates: start: 2009
  4. ASPIRIN [Concomitant]
     Dosage: 81 MG, QD
     Route: 048
  5. CELEBREX [Concomitant]
     Dosage: 200 MG, QD
     Route: 048
  6. CLONAZEPAM [Concomitant]
     Dosage: 1 MG, TID
     Route: 048
  7. CLONIDINE [Concomitant]
     Route: 048
  8. DOXEPIN [Concomitant]
     Dosage: 50 MG,AT BEDTIME
     Route: 048
  9. ELAVIL [Concomitant]
     Dosage: 50 MG, ONE AT SUPPER AND 2 AT BEDTIME
     Route: 048
  10. FLEXERIL [Concomitant]
     Dosage: 5 MG, THREE TIMES DAILY AS NEEDED
  11. GLIPIZIDE [Concomitant]
     Dosage: 10 MG, BID
     Route: 048
  12. HYDROCHLOROTHIAZIDE [Concomitant]
     Dosage: 25 MG, QD
     Route: 048
  13. LANTUS [Concomitant]
     Dosage: 60 UNITS AT BEDTIME
     Route: 058
  14. TRAMADOL [Concomitant]
     Dosage: 50 MG, TID
  15. VENTOLIN [Concomitant]
     Route: 045
  16. ZOLOFT [Concomitant]
     Dosage: 100 MG, QD
     Route: 048
  17. ATIVAN [Concomitant]
     Indication: ANXIETY
     Dosage: 1 MG, EVERY 8 HOURS AS NEEDED
     Route: 048
     Dates: start: 20120805
  18. CIPRO [Concomitant]
     Dosage: UNK
     Route: 048
     Dates: start: 20121009

REACTIONS (9)
  - Uterine perforation [None]
  - Infection [None]
  - Abdominal pain lower [None]
  - Injury [None]
  - Medical device pain [None]
  - Device misuse [None]
  - Depression [None]
  - Anxiety [None]
  - Device issue [None]
